FAERS Safety Report 20636629 (Version 1)
Quarter: 2022Q1

REPORT INFORMATION
  Report Type: Spontaneous
  Country: US (occurrence: None)
  Receive Date: 20220324
  Receipt Date: 20220324
  Transmission Date: 20220423
  Serious: No
  Sender: FDA-Public Use
  Company Number: None

PATIENT
  Age: 54 Year
  Sex: Male
  Weight: 78.75 kg

DRUGS (3)
  1. CREST PRO-HEALTH (CETYLPYRIDINIUM CHLORIDE) [Suspect]
     Active Substance: CETYLPYRIDINIUM CHLORIDE
     Indication: Dental disorder prophylaxis
     Dosage: FREQUENCY : TWICE A DAY;?
     Route: 048
  2. TADALAFIL [Concomitant]
     Active Substance: TADALAFIL
  3. OMEPRAZOLE [Concomitant]
     Active Substance: OMEPRAZOLE

REACTIONS (1)
  - Tongue discolouration [None]

NARRATIVE: CASE EVENT DATE: 20220324
